FAERS Safety Report 7043669-8 (Version None)
Quarter: 2010Q4

REPORT INFORMATION
  Report Type: 
  Country: None (occurrence: None)
  Receive Date: 20101013
  Receipt Date: 20100729
  Transmission Date: 20110411
  Serious: No
  Sender: FDA-Public Use
  Company Number: US-ASTRAZENECA-2010SE35575

PATIENT
  Age: 21 Year
  Sex: Female

DRUGS (3)
  1. SYMBICORT [Suspect]
     Indication: ASTHMA
     Route: 055
  2. PULMICORT [Concomitant]
  3. ALBUTEROL [Concomitant]

REACTIONS (2)
  - ASTHENIA [None]
  - PAIN IN EXTREMITY [None]
